FAERS Safety Report 9922620 (Version 1)
Quarter: 2014Q1

REPORT INFORMATION
  Report Type: Spontaneous
  Country: US (occurrence: US)
  Receive Date: 20140225
  Receipt Date: 20140225
  Transmission Date: 20141002
  Serious: No
  Sender: FDA-Public Use
  Company Number: US-MYLANLABS-2013S1016326

PATIENT
  Age: 54 Year
  Sex: Female
  Weight: 58.97 kg

DRUGS (6)
  1. DIVALPROEX SODIUM EXTENDED-RELEASE TABLETS [Suspect]
     Indication: BIPOLAR DISORDER
     Route: 048
     Dates: start: 201211
  2. LORAZEPAM [Concomitant]
  3. MELATONIN [Concomitant]
  4. PROGESTERONE [Concomitant]
  5. OLANZAPINE [Concomitant]
  6. ZYPREXA [Concomitant]

REACTIONS (6)
  - Drug effect decreased [Not Recovered/Not Resolved]
  - Mood swings [Not Recovered/Not Resolved]
  - Abdominal pain [Not Recovered/Not Resolved]
  - Insomnia [Not Recovered/Not Resolved]
  - Disturbance in attention [Not Recovered/Not Resolved]
  - Medication residue present [Not Recovered/Not Resolved]
